FAERS Safety Report 6277880-0 (Version None)
Quarter: 2009Q3

REPORT INFORMATION
  Report Type: 
  Country: None (occurrence: None)
  Receive Date: 20090722
  Receipt Date: 20090717
  Transmission Date: 20100115
  Serious: Yes (Hospitalization)
  Sender: FDA-Public Use
  Company Number: GB-NAPPMUNDI-GBR-2009-0005394

PATIENT
  Age: 60 Year
  Sex: Male
  Weight: 80.6 kg

DRUGS (27)
  1. OXYCODONE HCL [Suspect]
     Indication: PAIN
     Dosage: 40 MG, BID
     Route: 048
     Dates: start: 20081114
  2. OXYCODONE HCL [Suspect]
     Dosage: 50 MG, BID
     Route: 048
     Dates: start: 20081107, end: 20081114
  3. OXYCODONE HCL [Suspect]
     Dosage: 30 MG, BID
     Route: 048
     Dates: start: 20081024, end: 20081103
  4. AVASTIN [Suspect]
     Indication: NON-SMALL CELL LUNG CANCER
     Dosage: 1200 MG, EVERY 3 WEEKS CYCLIC
     Route: 042
     Dates: start: 20081106
  5. CARBOPLATIN [Suspect]
     Indication: NON-SMALL CELL LUNG CANCER
     Dosage: 680 MG, EVERY 3 WEEKS CYCLIC
     Route: 042
     Dates: start: 20081106, end: 20090108
  6. PACLITAXEL [Suspect]
     Indication: NON-SMALL CELL LUNG CANCER
     Dosage: 318 MG, EVERY 3 WEEKS CYCLIC
     Route: 042
     Dates: start: 20081106, end: 20090108
  7. OXYNORM LIQUID 5  MG/ 5 ML [Concomitant]
     Indication: PAIN
     Dosage: 75 ML, BID
     Route: 065
     Dates: start: 20081114
  8. OXYNORM LIQUID 5  MG/ 5 ML [Concomitant]
     Dosage: 5 TO 10 ML, PRN
     Route: 065
     Dates: start: 20081103
  9. OXYNORM LIQUID 5  MG/ 5 ML [Concomitant]
     Dosage: 5 ML, BID
     Route: 065
     Dates: start: 20081024, end: 20081103
  10. PREDNISOLONE [Concomitant]
     Indication: STRIDOR
     Dosage: 5 MG, DAILY
     Route: 065
     Dates: start: 20090108
  11. PREDNISOLONE [Concomitant]
     Indication: DYSPHONIA
     Dosage: 20 MG, DAILY
     Route: 065
     Dates: start: 20081024, end: 20090107
  12. ALBUTEROL [Concomitant]
     Indication: DYSPNOEA
     Dosage: UNK
     Route: 065
     Dates: start: 20081103
  13. SODIUM CHLORIDE [Concomitant]
     Indication: DYSPNOEA
     Dosage: UNK
     Route: 065
     Dates: start: 20081103
  14. MOVICOL                            /01053601/ [Concomitant]
     Indication: CONSTIPATION
     Dosage: 2 SACHET, DAILY
     Dates: start: 20081024
  15. MICROLAX                           /00285401/ [Concomitant]
     Indication: CONSTIPATION
     Dosage: UNK
     Route: 065
     Dates: start: 20081020
  16. DICLOFENAC [Concomitant]
     Indication: PAIN
     Dosage: 75 MG, BID
     Route: 065
     Dates: start: 20081119
  17. OMEPRAZOLE [Concomitant]
     Indication: PROPHYLAXIS
     Dosage: 20 MG, DAILY
     Route: 065
     Dates: start: 20081119
  18. OMEPRAZOLE [Concomitant]
     Dosage: 1 TABLET, DAILY
     Dates: start: 20080928, end: 20081105
  19. ZOPICLONE [Concomitant]
     Indication: INSOMNIA
     Dosage: 15 MG, NOCTE
     Route: 065
     Dates: start: 20081120
  20. ZOPICLONE [Concomitant]
     Dosage: 7.5 MG, NOCTE
     Route: 065
     Dates: start: 20080801, end: 20081105
  21. VITAMIN B COMPLEX                  /00003501/ [Concomitant]
     Indication: DRUG USE FOR UNKNOWN INDICATION
     Dosage: 1 TABLET, BID
     Route: 065
     Dates: start: 20081202
  22. BENDROFLUMETHIAZIDE [Concomitant]
     Indication: BLOOD PRESSURE
     Dosage: 2.5 MG, DAILY
     Route: 065
     Dates: start: 20090102
  23. ATROVENT [Concomitant]
     Indication: CHEST DISCOMFORT
     Dosage: 2 PUFF, DAILY
     Route: 065
     Dates: start: 20081223
  24. AMITRIPTYLINE [Concomitant]
     Indication: NEUROPATHY PERIPHERAL
     Dosage: 25 MG, DAILY
     Route: 065
     Dates: start: 20081223
  25. AMITRIPTYLINE [Concomitant]
     Indication: PAIN
  26. ANUSOL                             /00117301/ [Concomitant]
     Indication: ANORECTAL DISCOMFORT
     Dosage: UNK
     Route: 065
     Dates: start: 20090114
  27. PREDFOAM [Concomitant]
     Indication: ANORECTAL DISCOMFORT
     Route: 065

REACTIONS (1)
  - ANAL FISSURE [None]
